FAERS Safety Report 25401375 (Version 1)
Quarter: 2025Q2

REPORT INFORMATION
  Report Type: Spontaneous
  Country: US (occurrence: None)
  Receive Date: 20250604
  Receipt Date: 20250604
  Transmission Date: 20250717
  Serious: Yes (Life-Threatening, Hospitalization, Other)
  Sender: FDA-CTU
  Company Number: None

PATIENT
  Age: 33 Year
  Sex: Female
  Weight: 81 kg

DRUGS (3)
  1. LEXAPRO [Suspect]
     Active Substance: ESCITALOPRAM OXALATE
     Indication: Anxiety
     Dates: start: 20220530, end: 20220603
  2. SYNTHROID [Concomitant]
     Active Substance: LEVOTHYROXINE SODIUM
  3. ZOLOFT [Suspect]
     Active Substance: SERTRALINE HYDROCHLORIDE

REACTIONS (7)
  - Somnolence [None]
  - Adjustment disorder with depressed mood [None]
  - Therapy change [None]
  - Withdrawal syndrome [None]
  - Mania [None]
  - Vomiting [None]
  - Suicidal ideation [None]

NARRATIVE: CASE EVENT DATE: 20220728
